FAERS Safety Report 12955933 (Version 2)
Quarter: 2017Q1

REPORT INFORMATION
  Report Type: Spontaneous
  Country: JP (occurrence: JP)
  Receive Date: 20161118
  Receipt Date: 20170111
  Transmission Date: 20170428
  Serious: Yes (Death, Hospitalization, Other)
  Sender: FDA-Public Use
  Company Number: JP-GLAXOSMITHKLINE-JP2016JPN168026

PATIENT
  Sex: Female

DRUGS (8)
  1. TRYPTANOL [Concomitant]
     Active Substance: AMITRIPTYLINE
     Dosage: 10 MG, QD
  2. VALTREX [Suspect]
     Active Substance: VALACYCLOVIR HYDROCHLORIDE
     Indication: HERPES SIMPLEX
     Dosage: 1000 MG, BID
     Route: 048
     Dates: start: 20120501, end: 201205
  3. VALTREX [Suspect]
     Active Substance: VALACYCLOVIR HYDROCHLORIDE
     Dosage: 500 MG, QD
     Route: 048
     Dates: start: 20120709, end: 2015
  4. LANDSEN [Concomitant]
     Active Substance: CLONAZEPAM
     Dosage: 2 MG, QD
  5. VALTREX [Suspect]
     Active Substance: VALACYCLOVIR HYDROCHLORIDE
     Dosage: 1000 MG, BID
     Route: 048
     Dates: start: 20120618
  6. FOSAMAC [Concomitant]
     Active Substance: ALENDRONATE SODIUM
     Dosage: 35 MG, WE
  7. EPADEL S [Concomitant]
     Active Substance: ICOSAPENT ETHYL
     Dosage: 900 MG, TID
  8. TAKEPRON OD TABLETS [Concomitant]
     Dosage: 15 MG, QD

REACTIONS (2)
  - Dyspnoea [Unknown]
  - Interstitial lung disease [Fatal]
